FAERS Safety Report 14305238 (Version 1)
Quarter: 2017Q4

REPORT INFORMATION
  Report Type: Spontaneous
  Country: DE (occurrence: DE)
  Receive Date: 20171219
  Receipt Date: 20171219
  Transmission Date: 20180321
  Serious: Yes (Death, Other)
  Sender: FDA-Public Use
  Company Number: DE-OTSUKA-DJ20082568

PATIENT
  Age: 70 Year
  Sex: Male

DRUGS (6)
  1. TAVOR (LORAZEPAM) [Suspect]
     Active Substance: LORAZEPAM
     Indication: MANIA
     Dosage: 2.5 MG, UNK
     Route: 048
     Dates: start: 20080723
  2. ARIPIPRAZOLE. [Suspect]
     Active Substance: ARIPIPRAZOLE
     Indication: MANIA
     Dosage: 9.75 MG, UNK
     Route: 030
     Dates: start: 20080723
  3. ARIPIPRAZOLE. [Suspect]
     Active Substance: ARIPIPRAZOLE
     Indication: MANIA
     Dosage: 9.75 MG, UNK, RECEIVED 2 VIALS
     Route: 030
     Dates: start: 20080707
  4. HALDOL [Suspect]
     Active Substance: HALOPERIDOL
     Indication: MANIA
     Dosage: 10 MG, UNK
     Route: 042
     Dates: start: 20080723
  5. TAVOR (LORAZEPAM) [Suspect]
     Active Substance: LORAZEPAM
     Indication: MANIA
     Dosage: 4 MG, UNK
     Route: 042
     Dates: start: 20080723
  6. ZYPREXA [Suspect]
     Active Substance: OLANZAPINE
     Indication: MANIA
     Dosage: 20 MG, UNK ORODISPERSIBLE TABLET
     Route: 048
     Dates: start: 20080723

REACTIONS (3)
  - Circulatory collapse [Fatal]
  - Shock [Fatal]
  - Pulmonary embolism [Fatal]

NARRATIVE: CASE EVENT DATE: 20080724
